APPROVED DRUG PRODUCT: SYMFI LO
Active Ingredient: EFAVIRENZ; LAMIVUDINE; TENOFOVIR DISOPROXIL FUMARATE
Strength: 400MG;300MG;300MG
Dosage Form/Route: TABLET;ORAL
Application: N208255 | Product #001
Applicant: MYLAN PHARMACEUTICALS INC
Approved: Feb 5, 2018 | RLD: Yes | RS: No | Type: DISCN